FAERS Safety Report 23075623 (Version 1)
Quarter: 2023Q4

REPORT INFORMATION
  Report Type: Report from Study
  Country: GB (occurrence: GB)
  Receive Date: 20231017
  Receipt Date: 20231017
  Transmission Date: 20240109
  Serious: Yes (Hospitalization)
  Sender: FDA-Public Use
  Company Number: GB-JNJFOC-20231028100

PATIENT
  Age: 48 Year
  Sex: Female

DRUGS (1)
  1. PONESIMOD [Suspect]
     Active Substance: PONESIMOD
     Indication: Multiple sclerosis
     Route: 048
     Dates: start: 20231006

REACTIONS (12)
  - Malaise [Recovering/Resolving]
  - Nausea [Recovering/Resolving]
  - Abdominal pain [Recovering/Resolving]
  - Paraesthesia [Recovering/Resolving]
  - Oropharyngeal pain [Recovering/Resolving]
  - Flushing [Recovering/Resolving]
  - Disorientation [Recovering/Resolving]
  - Oxygen saturation abnormal [Recovering/Resolving]
  - Nasal congestion [Recovering/Resolving]
  - Cold sweat [Recovering/Resolving]
  - Hypoaesthesia [Recovering/Resolving]
  - Somnolence [Recovering/Resolving]

NARRATIVE: CASE EVENT DATE: 20231006
